FAERS Safety Report 8466468-9 (Version None)
Quarter: 2012Q2

REPORT INFORMATION
  Report Type: 
  Country: None (occurrence: None)
  Receive Date: 20120626
  Receipt Date: 20120621
  Transmission Date: 20120825
  Serious: Yes (Other)
  Sender: FDA-Public Use
  Company Number: PHHY2012GB053245

PATIENT
  Age: 70 Year
  Sex: Male
  Weight: 91 kg

DRUGS (4)
  1. SIMVASTATIN [Concomitant]
     Dates: start: 20120229
  2. TRAMADOL HCL [Suspect]
     Dates: start: 20120611
  3. BISOPROLOL FUMARATE [Concomitant]
     Dates: start: 20111013
  4. METFORMIN HCL [Concomitant]
     Dates: start: 20120229

REACTIONS (3)
  - DRUG INTOLERANCE [None]
  - BRADYCARDIA [None]
  - MALAISE [None]
